FAERS Safety Report 6582312-9 (Version None)
Quarter: 2010Q1

REPORT INFORMATION
  Report Type: 
  Country: None (occurrence: None)
  Receive Date: 20100212
  Receipt Date: 20100212
  Transmission Date: 20100710
  Serious: Yes (Life-Threatening, Hospitalization)
  Sender: FDA-Public Use
  Company Number: None

PATIENT
  Age: 39 Year
  Sex: Female
  Weight: 71.4 kg

DRUGS (1)
  1. LINEZOLID [Suspect]
     Indication: PERITONITIS
     Dosage: 600 MG BID PO
     Route: 048
     Dates: start: 20090806, end: 20090810

REACTIONS (6)
  - ASTHENIA [None]
  - DIARRHOEA [None]
  - GRAND MAL CONVULSION [None]
  - MENTAL STATUS CHANGES [None]
  - NAUSEA [None]
  - VOMITING [None]
